FAERS Safety Report 5587237-3 (Version None)
Quarter: 2008Q1

REPORT INFORMATION
  Report Type: 
  Country: None (occurrence: None)
  Receive Date: 20080110
  Receipt Date: 20071231
  Transmission Date: 20080703
  Serious: Yes (Other)
  Sender: FDA-Public Use
  Company Number: US-PFIZER INC-2007081431

PATIENT
  Sex: Male
  Weight: 119.09 kg

DRUGS (6)
  1. CHANTIX [Suspect]
     Indication: SMOKING CESSATION THERAPY
  2. SIMVASTATIN [Concomitant]
  3. WARFARIN SODIUM [Concomitant]
  4. COREG [Concomitant]
  5. FUROSEMIDE [Concomitant]
  6. ALL OTHER THERAPEUTIC PRODUCTS [Concomitant]

REACTIONS (6)
  - ANXIETY [None]
  - HEART RATE INCREASED [None]
  - IRRITABILITY [None]
  - MYOCARDIAL INFARCTION [None]
  - PARANOIA [None]
  - REACTION TO DRUG EXCIPIENTS [None]
